FAERS Safety Report 9179021 (Version 1)
Quarter: 2012Q4

REPORT INFORMATION
  Report Type: 
  Country: US (occurrence: US)
  Receive Date: 20121029
  Receipt Date: 20121029
  Transmission Date: 20130627
  Serious: No
  Sender: FDA-Public Use
  Company Number: US-AMGEN-USASP2012052913

PATIENT
  Age: 51 Year
  Sex: Female
  Weight: 30.84 kg

DRUGS (4)
  1. ENBREL [Suspect]
     Indication: PRODUCT USED FOR UNKNOWN INDICATION
     Dosage: 50 mg, qwk
     Route: 058
  2. SINGULAIR [Concomitant]
     Dosage: 4 mg, UNK
  3. VALIUM                             /00017001/ [Concomitant]
     Dosage: 10 mg, UNK
  4. BACTRIM [Concomitant]
     Dosage: 400-80 mg

REACTIONS (3)
  - Staphylococcal infection [Recovered/Resolved]
  - Hair texture abnormal [Unknown]
  - Rhinorrhoea [Unknown]
